FAERS Safety Report 5649942-X (Version None)
Quarter: 2008Q1

REPORT INFORMATION
  Report Type: 
  Country: None (occurrence: None)
  Receive Date: 20080304
  Receipt Date: 20080229
  Transmission Date: 20080703
  Serious: Yes (Other)
  Sender: FDA-Public Use
  Company Number: GB-MERCK-0803GBR00002

PATIENT
  Age: 78 Year
  Sex: Female
  Weight: 86 kg

DRUGS (5)
  1. ZETIA [Suspect]
     Indication: CORONARY ARTERY DISEASE
     Route: 048
     Dates: start: 20070911, end: 20080124
  2. AMLODIPINE BESYLATE [Concomitant]
     Route: 048
     Dates: start: 19961014
  3. BENDROFLUMETHIAZIDE [Concomitant]
     Indication: HYPERTENSION
     Route: 048
     Dates: start: 20031104
  4. BISOPROLOL [Concomitant]
     Route: 048
     Dates: start: 19971210
  5. ACETAMINOPHEN AND CODEINE PHOSPHATE [Concomitant]
     Route: 048
     Dates: start: 19970611

REACTIONS (1)
  - MYASTHENIA GRAVIS [None]
